FAERS Safety Report 8376552-6 (Version None)
Quarter: 2012Q2

REPORT INFORMATION
  Report Type: 
  Country: None (occurrence: None)
  Receive Date: 20120522
  Receipt Date: 20120511
  Transmission Date: 20120825
  Serious: No
  Sender: FDA-Public Use
  Company Number: US-ASTRAZENECA-2010SE29533

PATIENT
  Age: 55 Year
  Sex: Female
  Weight: 63.5 kg

DRUGS (21)
  1. SEROQUEL XR [Suspect]
     Indication: AFFECTIVE DISORDER
     Route: 048
     Dates: start: 20060101, end: 20090101
  2. SEROQUEL XR [Suspect]
     Indication: SLEEP DISORDER
     Route: 048
     Dates: start: 20060101, end: 20090101
  3. SEROQUEL XR [Suspect]
     Route: 048
     Dates: start: 20100601
  4. SEROQUEL XR [Suspect]
     Route: 048
     Dates: start: 20100601
  5. CRESTOR [Suspect]
     Route: 048
  6. SEROQUEL XR [Suspect]
     Route: 048
     Dates: start: 20090101, end: 20100601
  7. TOPAMAX [Concomitant]
  8. SEROQUEL XR [Suspect]
     Indication: BIPOLAR DISORDER
     Route: 048
     Dates: start: 20060101, end: 20090101
  9. SEROQUEL XR [Suspect]
     Route: 048
     Dates: start: 20090101, end: 20100601
  10. SEROQUEL XR [Suspect]
     Route: 048
     Dates: start: 20100601
  11. PRISTIQ [Concomitant]
  12. GENUVIA [Concomitant]
  13. LANTUS [Concomitant]
     Indication: DIABETES MELLITUS
  14. DEPAKOTE [Concomitant]
  15. RAMAPIL [Concomitant]
  16. SEROQUEL XR [Suspect]
     Route: 048
     Dates: start: 20090101, end: 20100601
  17. ATENOLOL [Concomitant]
     Indication: PALPITATIONS
  18. PROTONIX [Concomitant]
     Indication: GASTROOESOPHAGEAL REFLUX DISEASE
  19. GLUCOMETZA [Concomitant]
     Indication: DIABETES MELLITUS
  20. LIPITOR [Concomitant]
  21. SOLOSTAR [Concomitant]
     Indication: DIABETES MELLITUS

REACTIONS (7)
  - DIZZINESS [None]
  - FALL [None]
  - TREMOR [None]
  - HYPOTENSION [None]
  - DIABETES MELLITUS [None]
  - SOMNOLENCE [None]
  - SYNCOPE [None]
